FAERS Safety Report 7417129-6 (Version None)
Quarter: 2011Q2

REPORT INFORMATION
  Report Type: 
  Country: None (occurrence: None)
  Receive Date: 20110415
  Receipt Date: 20110404
  Transmission Date: 20111010
  Serious: Yes (Death, Hospitalization)
  Sender: FDA-Public Use
  Company Number: FR-JNJFOC-20101106741

PATIENT
  Age: 80 Year
  Sex: Male

DRUGS (2)
  1. ACETAMINOPHEN AND TRAMADOL HCL [Suspect]
     Indication: PAIN
     Route: 048
  2. PREVISCAN (FLUINDIONE) [Interacting]
     Indication: ARRHYTHMIA
     Route: 048

REACTIONS (3)
  - PROTHROMBIN TIME PROLONGED [None]
  - DRUG INTERACTION [None]
  - HAEMORRHAGE [None]
